FAERS Safety Report 19709087 (Version 1)
Quarter: 2021Q3

REPORT INFORMATION
  Report Type: Spontaneous
  Country: US (occurrence: US)
  Receive Date: 20210816
  Receipt Date: 20210816
  Transmission Date: 20211014
  Serious: Yes (Other)
  Sender: FDA-Public Use
  Company Number: US-PFIZER INC-CL-249-2009

PATIENT
  Age: 26 Year
  Sex: Male

DRUGS (1)
  1. BUPIVACAINE. [Suspect]
     Active Substance: BUPIVACAINE
     Dosage: 0.25% BUPIVACAINE BY INTRA?ARTICULAR INFUSION: 250?300 ML

REACTIONS (1)
  - Chondrolysis [Unknown]
